FAERS Safety Report 5700296-X (Version None)
Quarter: 2008Q2

REPORT INFORMATION
  Report Type: 
  Country: None (occurrence: None)
  Receive Date: 20080410
  Receipt Date: 20080402
  Transmission Date: 20081010
  Serious: Yes (Other)
  Sender: FDA-Public Use
  Company Number: A0718959A

PATIENT
  Age: 75 Year
  Sex: Female

DRUGS (2)
  1. CARVEDILOL [Suspect]
     Dosage: 12.5MG TWICE PER DAY
     Route: 048
     Dates: start: 20070901, end: 20080301
  2. LISINOPRIL [Concomitant]

REACTIONS (3)
  - DISORIENTATION [None]
  - HEART RATE DECREASED [None]
  - LOSS OF CONSCIOUSNESS [None]
